FAERS Safety Report 7787365-8 (Version None)
Quarter: 2011Q3

REPORT INFORMATION
  Report Type: 
  Country: None (occurrence: None)
  Receive Date: 20110929
  Receipt Date: 20110922
  Transmission Date: 20111222
  Serious: Yes (Other)
  Sender: FDA-Public Use
  Company Number: PHHY2011AU81118

PATIENT
  Sex: Female

DRUGS (3)
  1. GILENYA [Suspect]
     Dosage: UNK UKN, UNK
     Dates: start: 20110406
  2. REPREVE [Concomitant]
     Indication: RESTLESS LEGS SYNDROME
     Dosage: 0.5 MG, UNK
  3. ENDEP [Concomitant]
     Dosage: 12.5 MG, UNK

REACTIONS (1)
  - CYSTOID MACULAR OEDEMA [None]
